FAERS Safety Report 17471223 (Version 1)
Quarter: 2020Q1

REPORT INFORMATION
  Report Type: Spontaneous
  Country: ES (occurrence: ES)
  Receive Date: 20200228
  Receipt Date: 20200228
  Transmission Date: 20200409
  Serious: Yes (Hospitalization)
  Sender: FDA-Public Use
  Company Number: ES-TEVA-2020-ES-1192647

PATIENT
  Age: 79 Year
  Sex: Male

DRUGS (4)
  1. ALOPURINOL NORMON 100 MG COMPRIMIDOS EFG , 100 COMPRIMIDOS [Concomitant]
  2. LINAGLIPTINA 5 MG COMPRIMIDO [Concomitant]
  3. ENALAPRIL 5 MG COMPRIMIDO [Suspect]
     Active Substance: ENALAPRIL
     Indication: HYPERTENSION
     Dosage: 5 MG
     Route: 048
     Dates: start: 20190506, end: 20190508
  4. PRAVAFENIX 40 MG/160 MG CAPSULAS DURAS, 30 CAPSULAS [Concomitant]

REACTIONS (1)
  - Acute kidney injury [Recovered/Resolved]

NARRATIVE: CASE EVENT DATE: 20190507
